FAERS Safety Report 5622458-2 (Version None)
Quarter: 2008Q1

REPORT INFORMATION
  Report Type: 
  Country: None (occurrence: None)
  Receive Date: 20080211
  Receipt Date: 20080130
  Transmission Date: 20080703
  Serious: Yes (Other)
  Sender: FDA-Public Use
  Company Number: US-PFIZER INC-2008009801

PATIENT
  Sex: Female

DRUGS (9)
  1. CHANTIX [Suspect]
     Indication: SMOKING CESSATION THERAPY
  2. OXYCODONE HCL [Concomitant]
  3. KLONOPIN [Concomitant]
  4. MONTELUKAST SODIUM [Concomitant]
  5. TOPROL [Concomitant]
  6. NORVASC [Concomitant]
  7. ALBUTEROL [Concomitant]
  8. XANAX [Concomitant]
  9. CLONIDINE [Concomitant]

REACTIONS (2)
  - DEPRESSION [None]
  - SUICIDAL IDEATION [None]
